FAERS Safety Report 8379651-8 (Version None)
Quarter: 2012Q2

REPORT INFORMATION
  Report Type: 
  Country: None (occurrence: None)
  Receive Date: 20120523
  Receipt Date: 20120516
  Transmission Date: 20120825
  Serious: Yes (Hospitalization)
  Sender: FDA-Public Use
  Company Number: US-BAYER-2012-027752

PATIENT
  Age: 24 Year
  Sex: Female

DRUGS (8)
  1. VENTOLIN [Concomitant]
     Indication: ASTHMA
     Dosage: UNK UNK, PRN
  2. SENNA-MINT WAF [Concomitant]
     Dosage: 17.2 MG, HS
     Route: 048
  3. CARISOPRODOL [Concomitant]
     Dosage: 350 MG, TID
  4. DROSPIRENONE AND ETHINYL ESTRADIOL [Suspect]
     Indication: POLYCYSTIC OVARIES
     Dosage: UNK
     Dates: start: 20110411, end: 20110504
  5. DICLOFENAC SODIUM [Concomitant]
     Indication: PAIN
     Dosage: UNK UNK, PRN
     Route: 062
  6. LEVETIRACETAM [Concomitant]
     Dosage: 750 MG, BID
     Route: 048
  7. GABAPENTIN [Concomitant]
     Dosage: 300 MG, HS
  8. DOCUSATE [Concomitant]
     Indication: CONSTIPATION
     Dosage: 100 MG, PRN

REACTIONS (2)
  - CEREBROVASCULAR ACCIDENT [None]
  - INTRACRANIAL VENOUS SINUS THROMBOSIS [None]
